FAERS Safety Report 21486830 (Version 2)
Quarter: 2022Q4

REPORT INFORMATION
  Report Type: Spontaneous
  Country: IT (occurrence: IT)
  Receive Date: 20221020
  Receipt Date: 20221107
  Transmission Date: 20230113
  Serious: Yes (Other)
  Sender: FDA-Public Use
  Company Number: IT-TEVA-2022-IT-2817544

PATIENT
  Age: 3 Year
  Sex: Male

DRUGS (3)
  1. PREDNISONE [Suspect]
     Active Substance: PREDNISONE
     Indication: Prophylaxis
     Dosage: 1 MG/KG DAILY; 1 MG/KG/DAY OF PREDNISONE 3 DAYS BEFORE OA INFUSION, APPROXIMATELY 1 WEEK
     Route: 065
  2. ONASEMNOGENE ABEPARVOVEC [Suspect]
     Active Substance: ONASEMNOGENE ABEPARVOVEC
     Indication: Spinal muscular atrophy
     Dosage: DOSE: 1.1 X 10*14 VG/KG
     Route: 050
  3. AMPICILLIN [Concomitant]
     Active Substance: AMPICILLIN
     Indication: Leukocytosis
     Route: 065

REACTIONS (2)
  - Haemophagocytic lymphohistiocytosis [Recovering/Resolving]
  - Drug ineffective [Unknown]
